FAERS Safety Report 12060672 (Version 2)
Quarter: 2016Q1

REPORT INFORMATION
  Report Type: Report from Study
  Country: GB (occurrence: GB)
  Receive Date: 20160210
  Receipt Date: 20160219
  Transmission Date: 20160526
  Serious: Yes (Other)
  Sender: FDA-Public Use
  Company Number: GB-ABBVIE-16K-167-1554209-00

PATIENT
  Sex: Female

DRUGS (1)
  1. HUMIRA [Suspect]
     Active Substance: ADALIMUMAB
     Indication: RHEUMATOID ARTHRITIS
     Route: 058

REACTIONS (7)
  - Asthenia [Unknown]
  - Depressed mood [Unknown]
  - Pain in extremity [Unknown]
  - Pain [Unknown]
  - Mobility decreased [Unknown]
  - Lethargy [Unknown]
  - Anxiety [Unknown]
